FAERS Safety Report 4579395-4 (Version None)
Quarter: 2005Q1

REPORT INFORMATION
  Report Type: 
  Country: None (occurrence: None)
  Receive Date: 20050209
  Receipt Date: 20050126
  Transmission Date: 20050727
  Serious: Yes (Hospitalization, Other)
  Sender: FDA-Public Use
  Company Number: US_0502111670

PATIENT
  Age: 60 Year
  Sex: Male

DRUGS (1)
  1. HUMALOG [Suspect]
     Dosage: 85 U DAY
     Dates: start: 19970101

REACTIONS (13)
  - BACK INJURY [None]
  - CEREBROVASCULAR ACCIDENT [None]
  - DIFFICULTY IN WALKING [None]
  - FALL [None]
  - HYPOAESTHESIA [None]
  - LIMB INJURY [None]
  - LOSS OF CONSCIOUSNESS [None]
  - PAIN [None]
  - PNEUMONIA VIRAL [None]
  - RENAL FAILURE [None]
  - SHOCK HYPOGLYCAEMIC [None]
  - SOMNOLENCE [None]
  - THROMBOSIS [None]
